FAERS Safety Report 7129737-0 (Version None)
Quarter: 2010Q4

REPORT INFORMATION
  Report Type: 
  Country: None (occurrence: None)
  Receive Date: 20101130
  Receipt Date: 20101120
  Transmission Date: 20110411
  Serious: Yes (Hospitalization)
  Sender: FDA-Public Use
  Company Number: US-MPIJNJ-2010-05891

PATIENT
  Sex: Male
  Weight: 14.9 kg

DRUGS (4)
  1. VELCADE [Suspect]
     Indication: ACUTE MYELOID LEUKAEMIA
     Dosage: 1.3 MG/M2, CYCLIC
     Route: 040
     Dates: start: 20101103, end: 20101110
  2. CYTARABINE [Suspect]
     Indication: ACUTE MYELOID LEUKAEMIA
     Dosage: UNK
     Route: 037
     Dates: start: 20101102, end: 20101102
  3. CYTARABINE [Suspect]
     Dosage: 1000 MG/M2, CYCLIC
     Route: 042
     Dates: start: 20101103, end: 20101108
  4. ETOPOSIDE [Suspect]
     Indication: ACUTE MYELOID LEUKAEMIA
     Dosage: 150 MG/M2, CYCLIC
     Route: 042
     Dates: start: 20101103, end: 20101107

REACTIONS (3)
  - CAECITIS [None]
  - HYPOXIA [None]
  - ORAL DISCOMFORT [None]
